FAERS Safety Report 12406438 (Version 2)
Quarter: 2016Q2

REPORT INFORMATION
  Report Type: Spontaneous
  Country: PL (occurrence: PL)
  Receive Date: 20160526
  Receipt Date: 20160615
  Transmission Date: 20160815
  Serious: Yes (Hospitalization, Other)
  Sender: FDA-Public Use
  Company Number: PL-ROCHE-1763908

PATIENT
  Age: 62 Year
  Sex: Male
  Weight: 105 kg

DRUGS (8)
  1. ZELBORAF [Suspect]
     Active Substance: VEMURAFENIB
     Route: 048
     Dates: start: 20150914, end: 201604
  2. NEUROLIPON [Concomitant]
     Indication: POLYNEUROPATHY
     Route: 065
  3. ZELBORAF [Suspect]
     Active Substance: VEMURAFENIB
     Route: 048
     Dates: start: 201604, end: 20160523
  4. LYRICA [Concomitant]
     Active Substance: PREGABALIN
     Indication: POLYNEUROPATHY
     Route: 065
  5. NEUROTOP [Concomitant]
     Active Substance: CARBAMAZEPINE
     Indication: POLYNEUROPATHY
     Dosage: 2X300 MG
     Route: 065
  6. ZOMIKOS [Concomitant]
     Indication: METASTASES TO BONE
     Route: 065
  7. ZELBORAF [Suspect]
     Active Substance: VEMURAFENIB
     Indication: METASTATIC MALIGNANT MELANOMA
     Dosage: IN APRIL 2016 DOSE WAS REDUCED
     Route: 048
     Dates: start: 201508, end: 201604
  8. TARGIN [Concomitant]
     Active Substance: NALOXONE HYDROCHLORIDE\OXYCODONE HYDROCHLORIDE
     Dosage: 20+10 MG
     Route: 065

REACTIONS (2)
  - Median nerve injury [Recovering/Resolving]
  - Polyneuropathy [Recovering/Resolving]

NARRATIVE: CASE EVENT DATE: 201604
